FAERS Safety Report 4686032-7 (Version None)
Quarter: 2005Q2

REPORT INFORMATION
  Report Type: 
  Country: None (occurrence: None)
  Receive Date: 20050606
  Receipt Date: 20050519
  Transmission Date: 20051028
  Serious: Yes (Hospitalization)
  Sender: FDA-Public Use
  Company Number: 2005BI004332

PATIENT
  Age: 52 Year
  Sex: Female

DRUGS (2)
  1. NATALIZUMAB [Suspect]
     Indication: MULTIPLE SCLEROSIS
     Dosage: IV
     Route: 042
     Dates: start: 20050127, end: 20050127
  2. AMITRIPTYLINE [Concomitant]

REACTIONS (7)
  - ANGINA UNSTABLE [None]
  - CORONARY ARTERY DISEASE [None]
  - CORONARY ARTERY OCCLUSION [None]
  - DIABETES MELLITUS [None]
  - HYPOTENSION [None]
  - MYOCARDIAL INFARCTION [None]
  - TORSADE DE POINTES [None]
